FAERS Safety Report 4718691-4 (Version None)
Quarter: 2005Q3

REPORT INFORMATION
  Report Type: 
  Country: None (occurrence: None)
  Receive Date: 20050719
  Receipt Date: 20050706
  Transmission Date: 20060218
  Serious: Yes (Death, Other)
  Sender: FDA-Public Use
  Company Number: 2004032207

PATIENT
  Age: 49 Year
  Sex: Male

DRUGS (7)
  1. NEURONTIN [Suspect]
     Indication: RESTLESS LEGS SYNDROME
     Dosage: 300 MG (300 MG, 1 IN 1 D), ORAL
     Route: 048
     Dates: start: 19991222, end: 20020320
  2. VICODIN [Concomitant]
  3. CARDURA [Concomitant]
  4. CELEXBRA (CELECOXIB) [Concomitant]
  5. REMERON [Concomitant]
  6. KLONOPIN [Concomitant]
  7. VOLTAREN [Concomitant]

REACTIONS (10)
  - COMPLETED SUICIDE [None]
  - DRUG INEFFECTIVE [None]
  - INJURY ASPHYXIATION [None]
  - INTERVERTEBRAL DISC DISORDER [None]
  - NEUROPATHY PERIPHERAL [None]
  - POLYTRAUMATISM [None]
  - SELF INJURIOUS BEHAVIOUR [None]
  - SOMNOLENCE [None]
  - STRESS [None]
  - TREATMENT NONCOMPLIANCE [None]
